FAERS Safety Report 10518213 (Version 2)
Quarter: 2014Q4

REPORT INFORMATION
  Report Type: Report from Study
  Country: US (occurrence: US)
  Receive Date: 20141015
  Receipt Date: 20141118
  Transmission Date: 20150528
  Serious: Yes (Death)
  Sender: FDA-Public Use
  Company Number: US-AMGEN-USASL2014078444

PATIENT
  Age: 89 Year
  Sex: Female
  Weight: 68.49 kg

DRUGS (1)
  1. PROLIA [Suspect]
     Active Substance: DENOSUMAB
     Indication: OSTEOPOROSIS
     Dosage: 60 MG, Q6MO
     Route: 058
     Dates: start: 20131113, end: 20140515

REACTIONS (1)
  - Dementia Alzheimer^s type [Fatal]

NARRATIVE: CASE EVENT DATE: 20140910
